FAERS Safety Report 18419260 (Version 1)
Quarter: 2020Q4

REPORT INFORMATION
  Report Type: Spontaneous
  Country: US (occurrence: US)
  Receive Date: 20201023
  Receipt Date: 20201023
  Transmission Date: 20210114
  Serious: Yes (Hospitalization)
  Sender: FDA-Public Use
  Company Number: None

PATIENT
  Age: 58 Year
  Sex: Male
  Weight: 73.94 kg

DRUGS (1)
  1. IBUPROFEN (IBUPROFEN 600MG TAB) [Suspect]
     Active Substance: IBUPROFEN
     Indication: PAIN
     Route: 048
     Dates: start: 20160726, end: 20200909

REACTIONS (5)
  - Acute kidney injury [None]
  - Duodenitis [None]
  - Hypovolaemia [None]
  - Gastric haemorrhage [None]
  - Gastritis [None]

NARRATIVE: CASE EVENT DATE: 20200909
